FAERS Safety Report 9784963 (Version 1)
Quarter: 2013Q4

REPORT INFORMATION
  Report Type: Spontaneous
  Country: SE (occurrence: SE)
  Receive Date: 20131227
  Receipt Date: 20131227
  Transmission Date: 20140711
  Serious: Yes (Other)
  Sender: FDA-Public Use
  Company Number: SE-BRISTOL-MYERS SQUIBB COMPANY-19942879

PATIENT
  Age: 50 Year
  Sex: Female
  Weight: 115 kg

DRUGS (5)
  1. LYSODREN TABS 500 MG [Suspect]
     Indication: ADRENOCORTICAL CARCINOMA
     Dates: start: 201209
  2. SERTRALINE [Concomitant]
  3. MIRTAZAPINE [Concomitant]
  4. HYDROXYZINE [Concomitant]
  5. ONDANSETRON [Concomitant]

REACTIONS (1)
  - Electrocardiogram QT prolonged [Unknown]
